FAERS Safety Report 12806313 (Version 1)
Quarter: 2016Q4

REPORT INFORMATION
  Report Type: Spontaneous
  Country: US (occurrence: US)
  Receive Date: 20161003
  Receipt Date: 20161003
  Transmission Date: 20170207
  Serious: Yes (Disabling, Other)
  Sender: FDA-Public Use
  Company Number: None

PATIENT
  Age: 46 Year
  Sex: Female
  Weight: 68.4 kg

DRUGS (2)
  1. LEVOFLOXACIN 500 [Suspect]
     Active Substance: LEVOFLOXACIN
     Indication: BRONCHITIS
     Dosage: ?          QUANTITY:1 TABLET(S);?
     Route: 048
     Dates: start: 20160929, end: 20161001
  2. LEVOFLOXACIN 500 [Suspect]
     Active Substance: LEVOFLOXACIN
     Indication: PNEUMONIA
     Dosage: ?          QUANTITY:1 TABLET(S);?
     Route: 048
     Dates: start: 20160929, end: 20161001

REACTIONS (11)
  - Fear of death [None]
  - Depression [None]
  - Pain in extremity [None]
  - Hyperacusis [None]
  - Anxiety [None]
  - Panic reaction [None]
  - Hypopnoea [None]
  - Confusional state [None]
  - Dizziness [None]
  - Gait disturbance [None]
  - Visual impairment [None]

NARRATIVE: CASE EVENT DATE: 20160930
